FAERS Safety Report 19126875 (Version 1)
Quarter: 2021Q2

REPORT INFORMATION
  Report Type: Spontaneous
  Country: CN (occurrence: CN)
  Receive Date: 20210412
  Receipt Date: 20210412
  Transmission Date: 20210717
  Serious: Yes (Other)
  Sender: FDA-Public Use
  Company Number: CN-BAXTER-2021BAX006755

PATIENT
  Age: 61 Year
  Sex: Male
  Weight: 57 kg

DRUGS (4)
  1. ENDOXAN [Suspect]
     Active Substance: CYCLOPHOSPHAMIDE
     Indication: ANGIOIMMUNOBLASTIC T-CELL LYMPHOMA
     Dosage: CYCLOPHOSPHAMIDE FOR INJECTION 2.4G + SODIUM CHLORIDE INJECTION (500ML)
     Route: 041
     Dates: start: 20210302, end: 20210302
  2. 0.9% SODIUM CHLORIDE INJECTION [Suspect]
     Active Substance: SODIUM CHLORIDE
     Indication: MEDICATION DILUTION
     Dosage: CYCLOPHOSPHAMIDE FOR INJECTION 2.4G + SODIUM CHLORIDE INJECTION (500ML)
     Route: 041
     Dates: start: 20210302, end: 20210302
  3. ENDOXAN [Suspect]
     Active Substance: CYCLOPHOSPHAMIDE
     Dosage: CYCLOPHOSPHAMIDE FOR INJECTION 1.1G + SODIUM CHLORIDE INJECTION (250ML)
     Route: 042
     Dates: start: 20210302, end: 20210302
  4. 0.9% SODIUM CHLORIDE INJECTION [Suspect]
     Active Substance: SODIUM CHLORIDE
     Dosage: CYCLOPHOSPHAMIDE FOR INJECTION 1.1G + SODIUM CHLORIDE INJECTION (250ML)
     Route: 042
     Dates: start: 20210302, end: 20210302

REACTIONS (1)
  - Cytopenia [Recovering/Resolving]

NARRATIVE: CASE EVENT DATE: 20210306
